FAERS Safety Report 17125749 (Version 1)
Quarter: 2019Q4

REPORT INFORMATION
  Report Type: Spontaneous
  Country: JP (occurrence: JP)
  Receive Date: 20191208
  Receipt Date: 20191208
  Transmission Date: 20200122
  Serious: Yes (Other)
  Sender: FDA-Public Use
  Company Number: NVSJ2019JP001169

PATIENT
  Sex: Female

DRUGS (1)
  1. AFINITOR [Suspect]
     Active Substance: EVEROLIMUS
     Indication: BREAST CANCER RECURRENT
     Dosage: UNK
     Route: 048
     Dates: start: 20191009

REACTIONS (2)
  - Cell marker increased [Recovering/Resolving]
  - Concomitant disease aggravated [Recovering/Resolving]

NARRATIVE: CASE EVENT DATE: 20191010
